FAERS Safety Report 6216706-8 (Version None)
Quarter: 2009Q2

REPORT INFORMATION
  Report Type: 
  Country: None (occurrence: None)
  Receive Date: 20090605
  Receipt Date: 20090527
  Transmission Date: 20091009
  Serious: Yes (Other)
  Sender: FDA-Public Use
  Company Number: AU-JNJFOC-20070405056

PATIENT
  Sex: Female
  Weight: 55 kg

DRUGS (5)
  1. TOPIRAMATE [Suspect]
     Indication: EPILEPSY
  2. TRILEPTAL [Concomitant]
     Indication: EPILEPSY
  3. LAMOTRIGINE [Concomitant]
     Indication: EPILEPSY
  4. AMOXIL [Concomitant]
     Indication: LOWER RESPIRATORY TRACT INFECTION
  5. VITAMIN [Concomitant]

REACTIONS (5)
  - ABORTION SPONTANEOUS [None]
  - DRUG EXPOSURE DURING PREGNANCY [None]
  - HEPATITIS C [None]
  - LOWER RESPIRATORY TRACT INFECTION [None]
  - VAGINAL HAEMORRHAGE [None]
